FAERS Safety Report 8503337-X (Version None)
Quarter: 2012Q3

REPORT INFORMATION
  Report Type: 
  Country: None (occurrence: None)
  Receive Date: 20120711
  Receipt Date: 20120629
  Transmission Date: 20120928
  Serious: No
  Sender: FDA-Public Use
  Company Number: US-ASTRAZENECA-2011SE41690

PATIENT
  Age: 44 Year
  Sex: Female

DRUGS (3)
  1. RHINOCORT [Suspect]
     Route: 045
  2. NASONEX [Concomitant]
  3. ALLEGRA [Concomitant]

REACTIONS (10)
  - CONFUSIONAL STATE [None]
  - MOBILITY DECREASED [None]
  - MIGRAINE [None]
  - NERVOUS SYSTEM DISORDER [None]
  - FIBROMYALGIA [None]
  - MEMORY IMPAIRMENT [None]
  - THERAPEUTIC RESPONSE UNEXPECTED [None]
  - CEREBRAL ATROPHY [None]
  - ARTHRITIS [None]
  - DRUG DOSE OMISSION [None]
